FAERS Safety Report 4584733-2 (Version None)
Quarter: 2005Q1

REPORT INFORMATION
  Report Type: 
  Country: None (occurrence: None)
  Receive Date: 20050215
  Receipt Date: 20030303
  Transmission Date: 20050727
  Serious: No
  Sender: FDA-Public Use
  Company Number: C03-T-022

PATIENT
  Sex: Female

DRUGS (1)
  1. BUTALBITAL ACETAMINOPHEN AND CAFFEINE [Suspect]
     Indication: TENSION HEADACHE

REACTIONS (1)
  - FEELING ABNORMAL [None]
